FAERS Safety Report 10240605 (Version 1)
Quarter: 2014Q2

REPORT INFORMATION
  Report Type: Spontaneous
  Country: US (occurrence: None)
  Receive Date: 20140613
  Receipt Date: 20140613
  Transmission Date: 20141212
  Serious: Yes (Hospitalization)
  Sender: FDA-Public Use
  Company Number: None

PATIENT
  Age: 32 Year
  Sex: Female
  Weight: 71.67 kg

DRUGS (1)
  1. SULFAMETHOXAZOLE-TMP DS [Suspect]
     Indication: URINARY TRACT INFECTION
     Dosage: 1 TABLET TWICE DAY  TWICE DAILY TAKEN BY MOUTH
     Route: 048
     Dates: start: 20140602, end: 20140608

REACTIONS (6)
  - Pyrexia [None]
  - Chills [None]
  - Skin burning sensation [None]
  - Tremor [None]
  - Asthenia [None]
  - Rash generalised [None]
